FAERS Safety Report 14074082 (Version 1)
Quarter: 2017Q4

REPORT INFORMATION
  Report Type: Spontaneous
  Country: US (occurrence: US)
  Receive Date: 20171010
  Receipt Date: 20171010
  Transmission Date: 20180321
  Serious: No
  Sender: FDA-Public Use
  Company Number: US-JNJFOC-20170807341

PATIENT
  Sex: Male

DRUGS (7)
  1. PROBIOTICS NOS [Concomitant]
     Active Substance: PROBIOTICS NOS
     Indication: GENERAL PHYSICAL CONDITION
     Dosage: 3 MONTHS
     Route: 065
  2. TYLENOL EXTRA STRENGTH [Suspect]
     Active Substance: ACETAMINOPHEN
     Indication: OSTEOARTHRITIS
     Dosage: MORNING OVER 2 YEARS DAILY.
     Route: 048
     Dates: start: 2015, end: 20170802
  3. CIALIS [Concomitant]
     Active Substance: TADALAFIL
     Indication: PROSTATE CANCER
     Dosage: 2 WEEKS
     Route: 065
  4. TYLENOL PM EXTRA STRENGTH [Suspect]
     Active Substance: ACETAMINOPHEN\DIPHENHYDRAMINE HYDROCHLORIDE
     Indication: PAIN
     Dosage: BED TIME OVER 2 YEARS DAILY.
     Route: 048
     Dates: start: 2015, end: 20170802
  5. TYLENOL PM EXTRA STRENGTH [Suspect]
     Active Substance: ACETAMINOPHEN\DIPHENHYDRAMINE HYDROCHLORIDE
     Indication: OSTEOARTHRITIS
     Dosage: BED TIME OVER 2 YEARS DAILY.
     Route: 048
     Dates: start: 2015, end: 20170802
  6. VITAMINS C [Concomitant]
     Indication: GENERAL PHYSICAL CONDITION
     Dosage: 7 MONTH
     Route: 065
  7. BENAZEPRIL [Concomitant]
     Active Substance: BENAZEPRIL HYDROCHLORIDE
     Indication: HYPERTENSION
     Dosage: 20 YEARS
     Route: 065
     Dates: start: 19900201, end: 20170201

REACTIONS (5)
  - Drug administration error [Not Recovered/Not Resolved]
  - Hypoacusis [Unknown]
  - Tinnitus [Recovering/Resolving]
  - Drug prescribing error [Not Recovered/Not Resolved]
  - Vision blurred [Not Recovered/Not Resolved]
